FAERS Safety Report 18853127 (Version 1)
Quarter: 2021Q1

REPORT INFORMATION
  Report Type: Spontaneous
  Country: ES (occurrence: ES)
  Receive Date: 20210205
  Receipt Date: 20210205
  Transmission Date: 20210420
  Serious: Yes (Hospitalization)
  Sender: FDA-Public Use
  Company Number: ES-STRIDES ARCOLAB LIMITED-2021SP001499

PATIENT
  Age: 42 Year
  Sex: Female

DRUGS (2)
  1. LIDOCAINE. [Suspect]
     Active Substance: LIDOCAINE
     Dosage: UNK, ADDITIONAL HALF AMPOULE OF LIDOCAINE WAS INFUSED
     Route: 058
  2. LIDOCAINE. [Suspect]
     Active Substance: LIDOCAINE
     Indication: LOCAL ANAESTHESIA
     Dosage: UNK,  SC 2% LIDOCAINE (10ML?AMPOULE) WAS INFUSED IN HER RIGHT SEDILLOT^S TRIANGLE
     Route: 058

REACTIONS (10)
  - Cardiotoxicity [Unknown]
  - Dose calculation error [Unknown]
  - Seizure [Recovered/Resolved]
  - Pupils unequal [Recovered/Resolved]
  - Muscle rigidity [Unknown]
  - Paraesthesia [Unknown]
  - Loss of consciousness [Unknown]
  - Toxicity to various agents [Unknown]
  - Sinus tachycardia [Unknown]
  - Dry mouth [Unknown]
